FAERS Safety Report 23370126 (Version 1)
Quarter: 2024Q1

REPORT INFORMATION
  Report Type: Other
  Country: AU (occurrence: AU)
  Receive Date: 20240105
  Receipt Date: 20240105
  Transmission Date: 20240410
  Serious: Yes (Other)
  Sender: FDA-Public Use
  Company Number: AU-002147023-NVSC2022AU295878

PATIENT
  Sex: Female

DRUGS (2)
  1. OMALIZUMAB [Suspect]
     Active Substance: OMALIZUMAB
     Indication: Mastocytosis
     Dosage: 300 MG, EVERY 4 WEEKS (4 MONTH)
     Route: 065
     Dates: start: 20220425
  2. OMALIZUMAB [Suspect]
     Active Substance: OMALIZUMAB
     Indication: Anaphylactic reaction
     Dosage: 300 MG, BIW
     Route: 065
     Dates: start: 202210

REACTIONS (3)
  - Anaphylactic reaction [Recovered/Resolved]
  - Asthma [Unknown]
  - Therapeutic product effect incomplete [Unknown]
